FAERS Safety Report 7488936-9 (Version None)
Quarter: 2011Q2

REPORT INFORMATION
  Report Type: 
  Country: None (occurrence: None)
  Receive Date: 20110518
  Receipt Date: 20110418
  Transmission Date: 20111010
  Serious: No
  Sender: FDA-Public Use
  Company Number: US-BAYER-2011-035400

PATIENT
  Sex: Male
  Weight: 85.261 kg

DRUGS (3)
  1. ALEVE (CAPLET) [Suspect]
     Indication: ARTHRALGIA
     Dosage: UNK
  2. CARDIOVASCULAR SYSTEM DRUGS [Concomitant]
  3. ALEVE (CAPLET) [Suspect]
     Dosage: 660 MG, QD
     Dates: start: 20110301, end: 20110428

REACTIONS (2)
  - ABDOMINAL DISCOMFORT [None]
  - NAUSEA [None]
